FAERS Safety Report 18588308 (Version 1)
Quarter: 2020Q4

REPORT INFORMATION
  Report Type: Spontaneous
  Country: US (occurrence: US)
  Receive Date: 20201207
  Receipt Date: 20201207
  Transmission Date: 20210114
  Serious: No
  Sender: FDA-Public Use
  Company Number: US-PERRIGO-20US009204

PATIENT
  Age: 59 Year
  Sex: Male
  Weight: 58.96 kg

DRUGS (6)
  1. VALBENAZINE [Concomitant]
     Active Substance: VALBENAZINE
     Indication: BRUXISM
     Dosage: UNK
     Route: 065
  2. TRIAMCINOLONE ACETONIDE. [Suspect]
     Active Substance: TRIAMCINOLONE ACETONIDE
     Indication: PSORIASIS
     Dosage: SMALL AMOUNT, 3 TO 4 TIMES DAILY
     Route: 061
     Dates: start: 20200501
  3. ZYPREXA [Concomitant]
     Active Substance: OLANZAPINE
     Indication: ASTHENIA
     Dosage: UNK
     Route: 065
     Dates: start: 202002
  4. ZYPREXA [Concomitant]
     Active Substance: OLANZAPINE
     Indication: DECREASED APPETITE
  5. PAXIL [Concomitant]
     Active Substance: PAROXETINE HYDROCHLORIDE
     Indication: DEPRESSION
     Dosage: UNK
     Route: 065
  6. ATIVAN [Concomitant]
     Active Substance: LORAZEPAM
     Indication: BIPOLAR DISORDER
     Dosage: UNK
     Route: 065
     Dates: start: 202001

REACTIONS (3)
  - Trichorrhexis [Recovered/Resolved]
  - Alopecia [Not Recovered/Not Resolved]
  - Accidental exposure to product [Recovered/Resolved]

NARRATIVE: CASE EVENT DATE: 202005
